FAERS Safety Report 13824945 (Version 1)
Quarter: 2017Q3

REPORT INFORMATION
  Report Type: Spontaneous
  Country: US (occurrence: US)
  Receive Date: 20170802
  Receipt Date: 20170802
  Transmission Date: 20171127
  Serious: Yes (Other)
  Sender: FDA-Public Use
  Company Number: US-PFIZER INC-2017328992

PATIENT
  Sex: Female

DRUGS (2)
  1. XELJANZ XR [Suspect]
     Active Substance: TOFACITINIB CITRATE
     Dosage: 11 MG, DAILY
     Route: 048
  2. METHOTREXATE SODIUM. [Suspect]
     Active Substance: METHOTREXATE SODIUM
     Dosage: UNK

REACTIONS (9)
  - Muscle spasms [Unknown]
  - Fatigue [Unknown]
  - Spine malformation [Unknown]
  - Joint range of motion decreased [Unknown]
  - Bone swelling [Unknown]
  - Arthralgia [Unknown]
  - Oedema peripheral [Unknown]
  - Myalgia [Unknown]
  - Alopecia [Unknown]
